FAERS Safety Report 10889057 (Version 1)
Quarter: 2015Q1

REPORT INFORMATION
  Report Type: Spontaneous
  Country: US (occurrence: US)
  Receive Date: 20150305
  Receipt Date: 20150305
  Transmission Date: 20150721
  Serious: No
  Sender: FDA-Public Use
  Company Number: US-BAYER-2015-029409

PATIENT
  Age: 68 Year
  Sex: Male

DRUGS (2)
  1. LIPITOR [Concomitant]
     Active Substance: ATORVASTATIN CALCIUM
     Dosage: UNK
  2. ALEVE PM [Suspect]
     Active Substance: DIPHENHYDRAMINE HYDROCHLORIDE\NAPROXEN SODIUM
     Indication: ANALGESIC THERAPY
     Dosage: 2 DF, ONCE
     Route: 048
     Dates: start: 20150223, end: 20150223

REACTIONS (3)
  - Feeling abnormal [Not Recovered/Not Resolved]
  - Insomnia [Recovered/Resolved]
  - Dizziness [Not Recovered/Not Resolved]

NARRATIVE: CASE EVENT DATE: 20150223
